FAERS Safety Report 16068318 (Version 1)
Quarter: 2019Q1

REPORT INFORMATION
  Report Type: Report from Study
  Country: US (occurrence: US)
  Receive Date: 20190313
  Receipt Date: 20190313
  Transmission Date: 20190418
  Serious: Yes (Death, Hospitalization, Other)
  Sender: FDA-Public Use
  Company Number: US-GILEAD-2019-0395343

PATIENT
  Age: 74 Year
  Sex: Male

DRUGS (1)
  1. IDELALISIB [Suspect]
     Active Substance: IDELALISIB
     Indication: TONSIL CANCER
     Dosage: 100 MG, QD
     Route: 048
     Dates: start: 20180526, end: 20190125

REACTIONS (5)
  - Malignant neoplasm progression [Not Recovered/Not Resolved]
  - Off label use [Recovered/Resolved]
  - Dyspnoea [Not Recovered/Not Resolved]
  - Weight decreased [Unknown]
  - Salivary gland cancer [Fatal]

NARRATIVE: CASE EVENT DATE: 20180526
